FAERS Safety Report 10082372 (Version 1)
Quarter: 2014Q2

REPORT INFORMATION
  Report Type: Spontaneous
  Country: US (occurrence: None)
  Receive Date: 20140415
  Receipt Date: 20140415
  Transmission Date: 20141212
  Serious: No
  Sender: FDA-Public Use
  Company Number: None

PATIENT
  Age: 29 Year
  Sex: Female
  Weight: 90.72 kg

DRUGS (1)
  1. ZI XIU TANG [Suspect]
     Indication: WEIGHT DECREASED
     Dosage: 2 PILLS?ONCE DAILY ?TAKEN BY MOUTH
     Route: 048

REACTIONS (2)
  - Sinus tachycardia [None]
  - Hypertension [None]
